FAERS Safety Report 9708134 (Version 1)
Quarter: 2013Q4

REPORT INFORMATION
  Report Type: Report from Study
  Country: US (occurrence: US)
  Receive Date: 20131125
  Receipt Date: 20131125
  Transmission Date: 20140711
  Serious: Yes (Other)
  Sender: FDA-Public Use
  Company Number: US-UCBSA-103467

PATIENT
  Age: 50 Year
  Sex: Female
  Weight: 84 kg

DRUGS (9)
  1. CERTOLIZUMAB PEGOL [Suspect]
     Indication: RHEUMATOID ARTHRITIS
     Dosage: 200 MG; NO OF DOSES RECEIVED: 16
     Route: 058
     Dates: start: 20130408, end: 20131111
  2. CERTOLIZUMAB PEGOL [Suspect]
     Indication: RHEUMATOID ARTHRITIS
     Dosage: 400 MG ; NO OF DOSES RECEIVED: 3
     Route: 058
     Dates: start: 20130225, end: 20130325
  3. FOLIC ACID [Concomitant]
     Indication: RHEUMATOID ARTHRITIS
     Route: 048
     Dates: start: 20130225
  4. PROZAC [Concomitant]
     Indication: DEPRESSION
     Route: 048
     Dates: start: 2005
  5. CIMETIDINE [Concomitant]
     Indication: PEPTIC ULCER
     Route: 048
     Dates: start: 1990
  6. NAPROXEN [Concomitant]
     Indication: RHEUMATOID ARTHRITIS
     Route: 048
     Dates: start: 201203
  7. PREDNISONE [Concomitant]
     Indication: RHEUMATOID ARTHRITIS
     Route: 048
     Dates: start: 20121215
  8. D3 [Concomitant]
     Indication: VITAMIN SUPPLEMENTATION
     Dosage: 1000 U; QD
     Route: 048
     Dates: start: 20121215
  9. METHOTREXATE [Concomitant]
     Indication: RHEUMATOID ARTHRITIS
     Dosage: UNKNOWN DOSE

REACTIONS (1)
  - Cervix carcinoma [Not Recovered/Not Resolved]
